FAERS Safety Report 23440489 (Version 2)
Quarter: 2024Q1

REPORT INFORMATION
  Report Type: Spontaneous
  Country: ES (occurrence: ES)
  Receive Date: 20240125
  Receipt Date: 20240326
  Transmission Date: 20240409
  Serious: No
  Sender: FDA-Public Use
  Company Number: ES-AUROBINDO-AUR-APL-2024-002907

PATIENT
  Age: 62 Year
  Sex: Male

DRUGS (8)
  1. OXALIPLATIN [Suspect]
     Active Substance: OXALIPLATIN
     Indication: Small intestine carcinoma metastatic
     Dosage: UNK
     Route: 065
  2. LEUCOVORIN [Suspect]
     Active Substance: LEUCOVORIN\LEUCOVORIN CALCIUM
     Indication: Small intestine carcinoma metastatic
     Dosage: UNK
     Route: 065
  3. FLUOROURACIL [Suspect]
     Active Substance: FLUOROURACIL
     Indication: Small intestine carcinoma metastatic
     Dosage: UNK
     Route: 065
  4. KETAMINE [Interacting]
     Active Substance: KETAMINE
     Indication: Abdominal pain
     Dosage: 10 MILLIGRAM, FOURA DAY (ON DAY 1)
     Route: 048
  5. KETAMINE [Interacting]
     Active Substance: KETAMINE
     Dosage: 100 MILLIGRAM, FOURA DAY (ON DAY 8)
     Route: 048
  6. KETAMINE [Interacting]
     Active Substance: KETAMINE
     Dosage: 150 MILLIGRAM, FOURA DAY (ON DAY 11)
     Route: 048
  7. MAGNESIUM [Interacting]
     Active Substance: MAGNESIUM
     Indication: Hypomagnesaemia
     Dosage: 8 MILLIMOLE
     Route: 042
  8. MAGNESIUM [Interacting]
     Active Substance: MAGNESIUM
     Dosage: UNK (1 TO 2 EXTRA DOSES PER 24 HRS)
     Route: 058

REACTIONS (1)
  - Toxicity to various agents [Unknown]
